FAERS Safety Report 9831566 (Version 1)
Quarter: 2014Q1

REPORT INFORMATION
  Report Type: Spontaneous
  Country: JP (occurrence: JP)
  Receive Date: 20140121
  Receipt Date: 20140121
  Transmission Date: 20141002
  Serious: Yes (Death, Life-Threatening)
  Sender: FDA-Public Use
  Company Number: JP-JNJFOC-20140106843

PATIENT
  Age: 73 Year
  Sex: Male
  Weight: 49 kg

DRUGS (11)
  1. XARELTO [Suspect]
     Indication: THROMBOSIS PROPHYLAXIS
     Route: 048
     Dates: start: 20130730, end: 20130913
  2. LANSOPRAZOLE [Concomitant]
     Route: 048
  3. DIOVAN [Concomitant]
     Route: 048
  4. PROCYLIN [Concomitant]
     Route: 048
  5. ARGAMATE [Concomitant]
     Route: 048
  6. MAINTATE [Concomitant]
     Route: 048
  7. ALOSITOL [Concomitant]
     Route: 048
  8. PLAVIX [Concomitant]
     Route: 048
  9. BAYASPIRIN [Concomitant]
     Route: 048
  10. LIPITOR [Concomitant]
     Route: 048
  11. ANPLAG [Concomitant]
     Route: 048

REACTIONS (1)
  - Interstitial lung disease [Fatal]
